FAERS Safety Report 25047758 (Version 1)
Quarter: 2025Q1

REPORT INFORMATION
  Report Type: Spontaneous
  Country: US (occurrence: US)
  Receive Date: 20250306
  Receipt Date: 20250306
  Transmission Date: 20250409
  Serious: Yes (Hospitalization)
  Sender: ATHENA
  Company Number: US-SABAL THERAPEUTICS LLC-2025-ATH-000007

PATIENT

DRUGS (3)
  1. OZOBAX [Suspect]
     Active Substance: BACLOFEN
     Indication: Alcohol use disorder
     Dosage: 5 MG, TID
     Route: 065
  2. ATORVASTATIN [Concomitant]
     Active Substance: ATORVASTATIN
     Indication: Product used for unknown indication
     Route: 065
  3. EZETIMIBE [Concomitant]
     Active Substance: EZETIMIBE
     Indication: Product used for unknown indication
     Route: 065

REACTIONS (2)
  - Drug-induced liver injury [Recovered/Resolved]
  - Off label use [Unknown]
